FAERS Safety Report 5140634-2 (Version None)
Quarter: 2006Q4

REPORT INFORMATION
  Report Type: 
  Country: None (occurrence: None)
  Receive Date: 20061025
  Receipt Date: 20061012
  Transmission Date: 20070319
  Serious: Yes (Hospitalization)
  Sender: FDA-Public Use
  Company Number: 2006126001

PATIENT
  Age: 75 Year
  Sex: Female

DRUGS (3)
  1. PHENYTOIN [Suspect]
     Indication: BRONCHITIS
     Dosage: 300 MG (300 MG,1 IN 1 D), ORAL
     Route: 048
     Dates: start: 20051222, end: 20060123
  2. PHENYTOIN [Suspect]
     Indication: EPILEPSY
     Dosage: 300 MG (300 MG,1 IN 1 D), ORAL
     Route: 048
     Dates: start: 20051222, end: 20060123
  3. TRAMADOL HCL [Concomitant]

REACTIONS (5)
  - CONJUNCTIVITIS [None]
  - MUCOSAL ULCERATION [None]
  - PERIORBITAL OEDEMA [None]
  - STEVENS-JOHNSON SYNDROME [None]
  - URTICARIA [None]
